FAERS Safety Report 7601732-4 (Version None)
Quarter: 2011Q3

REPORT INFORMATION
  Report Type: 
  Country: None (occurrence: None)
  Receive Date: 20110711
  Receipt Date: 20110704
  Transmission Date: 20111222
  Serious: Yes (Hospitalization)
  Sender: FDA-Public Use
  Company Number: FR-ABBOTT-11P-056-0836283-00

PATIENT
  Sex: Female

DRUGS (1)
  1. HUMIRA [Suspect]
     Indication: ANKYLOSING SPONDYLITIS
     Route: 058
     Dates: start: 20090901, end: 20100401

REACTIONS (7)
  - PARAESTHESIA [None]
  - FATIGUE [None]
  - NAIL BED BLEEDING [None]
  - OPTIC NEURITIS [None]
  - VISUAL ACUITY REDUCED [None]
  - ASTHENOPIA [None]
  - MULTIPLE SCLEROSIS [None]
